FAERS Safety Report 9892543 (Version 2)
Quarter: 2014Q1

REPORT INFORMATION
  Report Type: Spontaneous
  Country: US (occurrence: US)
  Receive Date: 20140212
  Receipt Date: 20140212
  Transmission Date: 20141002
  Serious: Yes (Death)
  Sender: FDA-Public Use
  Company Number: US-BAXTER-2014BAX005382

PATIENT
  Age: 67 Year
  Sex: Male

DRUGS (1)
  1. 0.9% SODIUM CHLORIDE INJECTION [Suspect]
     Indication: RENAL FAILURE CHRONIC
     Route: 010
     Dates: start: 200906, end: 20140108

REACTIONS (7)
  - Hepatic cancer metastatic [Fatal]
  - Metastases to spleen [Fatal]
  - Metastases to lymph nodes [Fatal]
  - Hypotension [Fatal]
  - Asthenia [Not Recovered/Not Resolved]
  - Condition aggravated [Not Recovered/Not Resolved]
  - Hepatic mass [Not Recovered/Not Resolved]
